FAERS Safety Report 8829557 (Version 2)
Quarter: 2014Q3

REPORT INFORMATION
  Report Type: Report from Study
  Country: US (occurrence: US)
  Receive Date: 20121008
  Receipt Date: 20140903
  Transmission Date: 20150326
  Serious: Yes (Other)
  Sender: FDA-Public Use
  Company Number: US-ROCHE-1131162

PATIENT
  Age: 85 Year
  Sex: Male

DRUGS (1)
  1. RITUXAN [Suspect]
     Active Substance: RITUXIMAB
     Indication: IMMUNE THROMBOCYTOPENIC PURPURA
     Dosage: DOSE: 700 MG WEEKLY
     Route: 042
     Dates: start: 20010705, end: 20010809

REACTIONS (2)
  - Hearing impaired [Unknown]
  - Blindness [Unknown]

NARRATIVE: CASE EVENT DATE: 20010719
